FAERS Safety Report 12721650 (Version 1)
Quarter: 2016Q3

REPORT INFORMATION
  Report Type: Other
  Country: ES (occurrence: ES)
  Receive Date: 20160907
  Receipt Date: 20160907
  Transmission Date: 20161109
  Serious: Yes (Hospitalization, Other)
  Sender: FDA-Public Use
  Company Number: ES-UNITED THERAPEUTICS-UNT-2014-002060

PATIENT
  Age: 45 Year
  Sex: Female

DRUGS (1)
  1. REMODULIN [Suspect]
     Active Substance: TREPROSTINIL
     Indication: PULMONARY ARTERIAL HYPERTENSION
     Route: 065

REACTIONS (3)
  - Device failure [Recovered/Resolved]
  - Fatigue [Recovered/Resolved]
  - Incorrect dose administered by device [Recovered/Resolved]
